FAERS Safety Report 7022847-8 (Version None)
Quarter: 2010Q3

REPORT INFORMATION
  Report Type: 
  Country: None (occurrence: None)
  Receive Date: 20100930
  Receipt Date: 20100923
  Transmission Date: 20110219
  Serious: Yes (Hospitalization)
  Sender: FDA-Public Use
  Company Number: B0676881A

PATIENT
  Sex: Male
  Weight: 55 kg

DRUGS (11)
  1. MELPHALAN HYDROCHLORIDE [Suspect]
     Indication: MULTIPLE MYELOMA
     Dates: start: 20081113
  2. THALIDOMIDE [Suspect]
     Indication: MULTIPLE MYELOMA
     Route: 048
     Dates: start: 20081113
  3. PREDNISONE [Suspect]
     Indication: MULTIPLE MYELOMA
     Dates: start: 20081113
  4. ASPEGIC 1000 [Concomitant]
     Indication: THROMBOSIS PROPHYLAXIS
     Dosage: 100MG PER DAY
     Route: 048
     Dates: start: 20090425
  5. CITALOPRAM HYDROBROMIDE [Concomitant]
     Indication: ANXIETY
     Dosage: 10MG PER DAY
     Route: 048
     Dates: start: 20090424
  6. ACUPAN [Concomitant]
     Indication: BONE PAIN
     Route: 042
     Dates: start: 20081017
  7. EFFERALGAN [Concomitant]
     Dosage: 4G FOUR TIMES PER DAY
  8. RIVOTRIL [Concomitant]
     Dosage: 1TAB AT NIGHT
     Route: 048
  9. NULYTELY [Concomitant]
     Dosage: 2SAC IN THE MORNING
  10. MORPHINE [Concomitant]
     Dosage: 40MG TWICE PER DAY
  11. SKENAN [Concomitant]
     Dosage: 420MG TWICE PER DAY

REACTIONS (4)
  - CYANOSIS [None]
  - NEUROPATHY PERIPHERAL [None]
  - OEDEMA PERIPHERAL [None]
  - PAIN IN EXTREMITY [None]
